FAERS Safety Report 12430627 (Version 1)
Quarter: 2016Q2

REPORT INFORMATION
  Report Type: Report from Study
  Country: BR (occurrence: BR)
  Receive Date: 20160602
  Receipt Date: 20160602
  Transmission Date: 20160815
  Serious: Yes (Death)
  Sender: FDA-Public Use
  Company Number: PHHY2016BR075722

PATIENT
  Age: 82 Year
  Sex: Male
  Weight: 92 kg

DRUGS (5)
  1. NEOTIAPIM [Suspect]
     Active Substance: QUETIAPINE
     Indication: LOGORRHOEA
     Dosage: 25 MG, QD
     Route: 048
     Dates: start: 201510
  2. EXELON PATCH [Suspect]
     Active Substance: RIVASTIGMINE
     Indication: DEMENTIA
     Dosage: PATCH 5 (CM2),  QD
     Route: 062
     Dates: start: 201501
  3. EXELON PATCH [Suspect]
     Active Substance: RIVASTIGMINE
     Dosage: PATCH 15 (CM2), QD
     Route: 062
     Dates: start: 201602
  4. EXELON PATCH [Suspect]
     Active Substance: RIVASTIGMINE
     Indication: PARKINSON^S DISEASE
     Dosage: PATCH 10 (CM2), QD
     Route: 062
     Dates: start: 201508
  5. NEOTIAPIM [Suspect]
     Active Substance: QUETIAPINE
     Indication: HALLUCINATION

REACTIONS (3)
  - Gastric haemorrhage [Fatal]
  - Abdominal pain upper [Unknown]
  - Malaise [Unknown]

NARRATIVE: CASE EVENT DATE: 20160522
